FAERS Safety Report 8926908 (Version 1)
Quarter: 2012Q4

REPORT INFORMATION
  Report Type: Report from Study
  Country: IN (occurrence: IN)
  Receive Date: 20121127
  Receipt Date: 20121127
  Transmission Date: 20130627
  Serious: Yes (Death)
  Sender: FDA-Public Use
  Company Number: IN-PFIZER INC-2012294398

PATIENT
  Age: 51 Year
  Sex: Female

DRUGS (8)
  1. CISPLATIN [Suspect]
     Indication: SQUAMOUS CELL CARCINOMA OF HEAD AND NECK
     Dosage: 40 mg/m2, 1x/day
     Route: 042
     Dates: start: 20120813
  2. P276-00 [Suspect]
     Indication: SQUAMOUS CELL CARCINOMA OF HEAD AND NECK
     Dosage: 100 mg/m2, 1x/day
     Route: 042
     Dates: start: 20120813, end: 20120911
  3. RANITIDINE [Concomitant]
     Indication: GASTRITIS
     Dosage: 300 mg, UNK
     Route: 048
     Dates: start: 20120813, end: 20120912
  4. METOCLOPRAMIDE [Concomitant]
     Indication: NAUSEA
     Dosage: 10 mg, UNK
     Route: 048
     Dates: start: 20120813, end: 20120912
  5. METOCLOPRAMIDE [Concomitant]
     Indication: VOMITING
  6. DEXAMETHASONE [Concomitant]
     Indication: INFLAMMATION
     Dosage: 8 mg, UNK
     Route: 048
     Dates: start: 20120814, end: 20120912
  7. ACECLOFENAC/PARACETAMOL [Concomitant]
     Indication: PAIN
     Dosage: 1200 mg, UNK
     Route: 048
     Dates: start: 20120803, end: 20120912
  8. B COMPLEX [Concomitant]
     Indication: VITAMIN SUPPLEMENTATION
     Dosage: 1 teaspoon
     Route: 048
     Dates: start: 20120813, end: 20120912

REACTIONS (2)
  - Pneumonia aspiration [Fatal]
  - Myocardial ischaemia [Fatal]
